FAERS Safety Report 4339295-1 (Version None)
Quarter: 2004Q2

REPORT INFORMATION
  Report Type: 
  Country: None (occurrence: None)
  Receive Date: 20040412
  Receipt Date: 20040331
  Transmission Date: 20050107
  Serious: Yes (Hospitalization)
  Sender: FDA-Public Use
  Company Number: TCI2003A01323

PATIENT
  Age: 48 Year
  Sex: Male

DRUGS (6)
  1. ACTOS [Suspect]
     Indication: DIABETES MELLITUS NON-INSULIN-DEPENDENT
     Dosage: 15 MG (15 MG, 1 IN 1 D) PER ORAL
     Route: 048
     Dates: start: 20010707, end: 20020315
  2. FAMOTIDINE [Concomitant]
  3. TEPRENONE [Concomitant]
  4. FERROUS CITRATE [Concomitant]
  5. HICEE GRANULES (ASCORBIC ACID) [Concomitant]
  6. ESCABET MONOSODIUM [Concomitant]

REACTIONS (6)
  - ACUTE MYOCARDIAL INFARCTION [None]
  - ANAEMIA [None]
  - BLOOD PRESSURE INCREASED [None]
  - CORONARY ARTERY STENOSIS [None]
  - GASTROINTESTINAL HAEMORRHAGE [None]
  - INCREASED VENTRICULAR PRELOAD [None]
